FAERS Safety Report 8020965-9 (Version None)
Quarter: 2011Q4

REPORT INFORMATION
  Report Type: 
  Country: None (occurrence: None)
  Receive Date: 20111228
  Receipt Date: 20111215
  Transmission Date: 20120403
  Serious: Yes (Hospitalization, Other)
  Sender: FDA-Public Use
  Company Number: AUR-APL-2009-00388

PATIENT
  Age: 26 Year
  Sex: Male

DRUGS (2)
  1. CLOZAPINE [Suspect]
     Indication: INTENTIONAL OVERDOSE
     Dosage: 5 G (5X100 MG)
  2. CITALOPRAM HYDROBROMIDE [Suspect]
     Indication: INTENTIONAL OVERDOSE
     Dosage: 800 MG, ORAL
     Route: 048

REACTIONS (18)
  - MULTIPLE DRUG OVERDOSE INTENTIONAL [None]
  - CARDIOTOXICITY [None]
  - PULMONARY OEDEMA [None]
  - LEUKOCYTOSIS [None]
  - RESPIRATORY RATE INCREASED [None]
  - HYPOXIA [None]
  - SINUS TACHYCARDIA [None]
  - TOXICITY TO VARIOUS AGENTS [None]
  - GASTROINTESTINAL HYPOMOTILITY [None]
  - CONFUSIONAL STATE [None]
  - PNEUMONIA ASPIRATION [None]
  - BLOOD PRESSURE SYSTOLIC INCREASED [None]
  - PYREXIA [None]
  - PSYCHOMOTOR HYPERACTIVITY [None]
  - RALES [None]
  - ANAEMIA [None]
  - C-REACTIVE PROTEIN INCREASED [None]
  - ASPARTATE AMINOTRANSFERASE INCREASED [None]
